FAERS Safety Report 14089595 (Version 1)
Quarter: 2017Q4

REPORT INFORMATION
  Report Type: Report from Study
  Country: US (occurrence: US)
  Receive Date: 20171013
  Receipt Date: 20171013
  Transmission Date: 20180321
  Serious: No
  Sender: FDA-Public Use
  Company Number: US-AMGEN-USASL2017107799

PATIENT
  Age: 73 Year
  Sex: Male

DRUGS (10)
  1. PROLIA [Suspect]
     Active Substance: DENOSUMAB
     Indication: ARTHRALGIA
  2. PROLIA [Suspect]
     Active Substance: DENOSUMAB
     Indication: INTERVERTEBRAL DISC DISORDER
  3. PROLIA [Suspect]
     Active Substance: DENOSUMAB
     Indication: OSTEOPOROTIC FRACTURE
  4. PROLIA [Suspect]
     Active Substance: DENOSUMAB
     Indication: DIZZINESS
  5. CALCIUM [Concomitant]
     Active Substance: CALCIUM
     Dosage: UNK
  6. PROLIA [Suspect]
     Active Substance: DENOSUMAB
     Indication: OSTEOPOROTIC FRACTURE
     Dosage: 60 MG, Q6MO
     Route: 058
  7. PROLIA [Suspect]
     Active Substance: DENOSUMAB
     Indication: NECK PAIN
  8. PROLIA [Suspect]
     Active Substance: DENOSUMAB
     Indication: BACK PAIN
  9. VITAMIN D [Concomitant]
     Active Substance: CHOLECALCIFEROL
     Dosage: UNK
  10. PROLIA [Suspect]
     Active Substance: DENOSUMAB
     Indication: HEADACHE

REACTIONS (1)
  - Off label use [Unknown]
